FAERS Safety Report 4285542-4 (Version None)
Quarter: 2004Q1

REPORT INFORMATION
  Report Type: 
  Country: None (occurrence: None)
  Receive Date: 20040203
  Receipt Date: 19930719
  Transmission Date: 20041129
  Serious: Yes (Hospitalization)
  Sender: FDA-Public Use
  Company Number: 110SDN9330094 (0)

PATIENT
  Age: 68 Year
  Sex: Male

DRUGS (1)
  1. OMNIPAQUE 140 [Suspect]
     Indication: DRUG USE FOR UNKNOWN INDICATION
     Dosage: SINGLE DOSE I.A.
     Route: 013
     Dates: start: 19920728, end: 19920728

REACTIONS (3)
  - APHASIA [None]
  - BLINDNESS [None]
  - FEELING HOT [None]
